FAERS Safety Report 9812763 (Version 2)
Quarter: 2014Q1

REPORT INFORMATION
  Report Type: Report from Study
  Country: US (occurrence: US)
  Receive Date: 20140113
  Receipt Date: 20140113
  Transmission Date: 20141002
  Serious: Yes (Other)
  Sender: FDA-Public Use
  Company Number: US-JNJFOC-20131107092

PATIENT
  Sex: Female
  Weight: 79.83 kg

DRUGS (11)
  1. REMICADE [Suspect]
     Indication: CROHN^S DISEASE
     Dosage: 4 VIALS
     Route: 042
     Dates: start: 201305, end: 2013
  2. REMICADE [Suspect]
     Indication: CROHN^S DISEASE
     Dosage: 8 VIALS
     Route: 042
     Dates: start: 201308, end: 201311
  3. REMICADE [Suspect]
     Indication: CROHN^S DISEASE
     Dosage: 9 VIALS
     Route: 042
     Dates: start: 201311
  4. REMICADE [Suspect]
     Indication: CROHN^S DISEASE
     Dosage: 4 VIALS
     Route: 042
     Dates: start: 201301, end: 201304
  5. PREDNISONE [Suspect]
     Indication: CROHN^S DISEASE
     Route: 065
     Dates: start: 201301, end: 2013
  6. MERCAPTOPURINE [Suspect]
     Indication: CROHN^S DISEASE
     Route: 065
     Dates: end: 201311
  7. PRAVASTATIN [Concomitant]
     Indication: BLOOD CHOLESTEROL
     Route: 048
     Dates: start: 201309
  8. LIALDA [Concomitant]
     Indication: CROHN^S DISEASE
     Route: 048
     Dates: start: 2012
  9. LOMOTIL [Concomitant]
     Indication: DIARRHOEA
     Route: 065
  10. XANAX [Concomitant]
     Indication: DEPRESSION
     Dosage: 0.50MG, TABLET, 0.25MG ONCE A??DAY AT NIGHT
     Route: 048
     Dates: start: 2013
  11. XANAX [Concomitant]
     Indication: ANXIETY
     Dosage: 0.50MG, TABLET, 0.25MG ONCE A??DAY AT NIGHT
     Route: 048
     Dates: start: 2013

REACTIONS (5)
  - Multiple system atrophy [Unknown]
  - Drug ineffective [Recovering/Resolving]
  - Drug specific antibody present [Not Recovered/Not Resolved]
  - Weight increased [Unknown]
  - Frequent bowel movements [Recovering/Resolving]
